FAERS Safety Report 8321665-8 (Version None)
Quarter: 2012Q2

REPORT INFORMATION
  Report Type: 
  Country: None (occurrence: None)
  Receive Date: 20120430
  Receipt Date: 20120418
  Transmission Date: 20120825
  Serious: Yes (Hospitalization, Other)
  Sender: FDA-Public Use
  Company Number: PHHY2012NO017389

PATIENT
  Sex: Female
  Weight: 56 kg

DRUGS (4)
  1. TASIGNA [Suspect]
     Dosage: 200 + 400 MG DAILY
     Dates: start: 20111011
  2. TASIGNA [Suspect]
     Dosage: 300 MG X 2 / DAY
  3. TASIGNA [Suspect]
     Dosage: 200 MG X 2
     Route: 048
     Dates: start: 20110930
  4. TASIGNA [Suspect]
     Indication: CHRONIC MYELOID LEUKAEMIA
     Dosage: 400 MG X 2
     Route: 048
     Dates: start: 20100512, end: 20110929

REACTIONS (5)
  - APPENDICITIS [None]
  - DEHYDRATION [None]
  - ABDOMINAL PAIN UPPER [None]
  - MALAISE [None]
  - ELECTROCARDIOGRAM QT PROLONGED [None]
